FAERS Safety Report 4498498-6 (Version None)
Quarter: 2004Q4

REPORT INFORMATION
  Report Type: 
  Country: None (occurrence: None)
  Receive Date: 20041105
  Receipt Date: 20041023
  Transmission Date: 20050328
  Serious: Yes (Other)
  Sender: FDA-Public Use
  Company Number: A0531495A

PATIENT
  Sex: Female

DRUGS (2)
  1. NICORETTE [Suspect]
     Indication: SMOKING CESSATION THERAPY
     Dosage: 4 MG / TRANSBUCCAL
     Dates: start: 20010101, end: 20040101
  2. NICORETTE [Suspect]
     Dosage: TRANSBUCCAL
     Dates: start: 20040101

REACTIONS (1)
  - HEPATIC ENZYME ABNORMAL [None]
